FAERS Safety Report 20520132 (Version 1)
Quarter: 2022Q1

REPORT INFORMATION
  Report Type: Spontaneous
  Country: BR (occurrence: BR)
  Receive Date: 20220225
  Receipt Date: 20220225
  Transmission Date: 20220423
  Serious: Yes (Disabling)
  Sender: FDA-Public Use
  Company Number: BR-SA-SAC20211007000378

PATIENT
  Age: 18 Year
  Sex: Female
  Weight: 33 kg

DRUGS (2)
  1. LARONIDASE [Suspect]
     Active Substance: LARONIDASE
     Indication: Mucopolysaccharidosis I
     Dosage: 7 DF (VIALS), QW
     Route: 042
     Dates: start: 20070101, end: 20210918
  2. LARONIDASE [Suspect]
     Active Substance: LARONIDASE
     Dosage: UNK
     Route: 042
     Dates: start: 2021

REACTIONS (4)
  - Product dose omission issue [Unknown]
  - Gait inability [Recovering/Resolving]
  - Fall [Recovering/Resolving]
  - Mobility decreased [Recovering/Resolving]

NARRATIVE: CASE EVENT DATE: 20150101
